FAERS Safety Report 6557488-X (Version None)
Quarter: 2010Q1

REPORT INFORMATION
  Report Type: 
  Country: None (occurrence: None)
  Receive Date: 20100129
  Receipt Date: 20100121
  Transmission Date: 20100710
  Serious: Yes (Hospitalization, Other)
  Sender: FDA-Public Use
  Company Number: US-ROCHE-676221

PATIENT
  Sex: Female
  Weight: 83.9 kg

DRUGS (6)
  1. PEGASYS [Suspect]
     Indication: HEPATITIS C
     Dosage: FORM: PRE-FILLED SYRINGE
     Route: 065
     Dates: start: 20091115
  2. COPEGUS [Suspect]
     Indication: HEPATITIS C
     Dosage: DIVIDED DOSES, 3 TABLETS BID
     Route: 048
     Dates: start: 20091115
  3. OMEGA 3 PLUS [Concomitant]
     Dosage: DRUG REPORTED AS OMEGA III
  4. VIT B [Concomitant]
     Dosage: DRUG REPORTED AS B VITAMINS
  5. CELEXA [Concomitant]
  6. TRAMADOL [Concomitant]
     Indication: ARTHRITIS

REACTIONS (18)
  - COUGH [None]
  - DECREASED APPETITE [None]
  - DIZZINESS [None]
  - DRY MOUTH [None]
  - DYSPHONIA [None]
  - FALL [None]
  - FATIGUE [None]
  - HAEMATOCHEZIA [None]
  - HAEMOPTYSIS [None]
  - OROPHARYNGEAL PAIN [None]
  - PRURITUS [None]
  - PYREXIA [None]
  - RASH PRURITIC [None]
  - SUICIDAL IDEATION [None]
  - TONGUE DRY [None]
  - URTICARIA [None]
  - VOMITING [None]
  - WEIGHT DECREASED [None]
